FAERS Safety Report 4803627-8 (Version None)
Quarter: 2005Q4

REPORT INFORMATION
  Report Type: 
  Country: None (occurrence: None)
  Receive Date: 20051014
  Receipt Date: 20050314
  Transmission Date: 20060501
  Serious: Yes (Hospitalization)
  Sender: FDA-Public Use
  Company Number: 05P-163-0290609-00

PATIENT
  Age: 49 Year
  Sex: Male
  Weight: 95.709 kg

DRUGS (11)
  1. KALETRA [Suspect]
     Indication: ACQUIRED IMMUNODEFICIENCY SYNDROME
     Dosage: 2 IN 1 D, PER ORAL
     Route: 048
     Dates: start: 20050125
  2. KALETRA [Suspect]
     Indication: HIV INFECTION
     Dosage: 2 IN 1 D, PER ORAL
     Route: 048
     Dates: start: 20050125
  3. EPZICOM [Suspect]
     Indication: ACQUIRED IMMUNODEFICIENCY SYNDROME
     Dosage: 1 IN 1 D, PER ORAL
     Route: 048
     Dates: start: 20050126
  4. EPZICOM [Suspect]
     Indication: HIV INFECTION
     Dosage: 1 IN 1 D, PER ORAL
     Route: 048
     Dates: start: 20050126
  5. BACTRIM [Concomitant]
  6. CODEINE [Concomitant]
  7. CARVEDILOL [Concomitant]
  8. LISINOPRIL [Concomitant]
  9. CLOPIDOGREL BISULFATE [Concomitant]
  10. INSULIN [Concomitant]
  11. ASPART [Concomitant]

REACTIONS (8)
  - BLOOD GLUCOSE INCREASED [None]
  - COUGH [None]
  - DIARRHOEA [None]
  - INSOMNIA [None]
  - NAUSEA [None]
  - PRURITUS [None]
  - RASH ERYTHEMATOUS [None]
  - VOMITING [None]
